FAERS Safety Report 18140520 (Version 2)
Quarter: 2020Q3

REPORT INFORMATION
  Report Type: Spontaneous
  Country: BE (occurrence: BE)
  Receive Date: 20200812
  Receipt Date: 20200911
  Transmission Date: 20201103
  Serious: Yes (Life-Threatening)
  Sender: FDA-Public Use
  Company Number: BE-PFIZER INC-2020305706

PATIENT
  Age: 73 Year
  Sex: Male
  Weight: 89 kg

DRUGS (15)
  1. ISOTEN [Concomitant]
     Active Substance: BISOPROLOL FUMARATE
     Dosage: 1 DF (1.25 MG), 1X/DAY, VIA TUBING
  2. CEFEPIME [Concomitant]
     Active Substance: CEFEPIME HYDROCHLORIDE
     Indication: LUNG DISORDER
     Dosage: 2 G, EVERY 12 HOURS
     Route: 042
     Dates: start: 20200707, end: 20200710
  3. OMEPRAZOL [Concomitant]
     Active Substance: OMEPRAZOLE
     Dosage: PREPARATION OF OMEPRAZOLE IN SUSPENSION MADE BY THE HOSPITAL (BY JEJUNAL TUBE)
  4. ZYVOXID [Suspect]
     Active Substance: LINEZOLID
     Indication: INTERVERTEBRAL DISCITIS
     Dosage: 2 DF (2MG/2ML), 1X/DAY
     Route: 041
     Dates: start: 20200702
  5. ZYVOXID [Suspect]
     Active Substance: LINEZOLID
     Indication: STAPHYLOCOCCAL INFECTION
  6. DIFLUCAN [Concomitant]
     Active Substance: FLUCONAZOLE
     Indication: CANDIDA INFECTION
     Dosage: 400 MG (SOLUTION FOR INFUSION)
     Route: 042
     Dates: start: 20200529, end: 20200715
  7. FLAGYL [Concomitant]
     Active Substance: METRONIDAZOLE\METRONIDAZOLE HYDROCHLORIDE
     Indication: SUPERINFECTION
  8. ENOXAPARIN [Concomitant]
     Active Substance: ENOXAPARIN
     Indication: THROMBOSIS PROPHYLAXIS
     Dosage: 20 MG, 1X/DAY
     Route: 058
     Dates: start: 20200413, end: 20200713
  9. LYSOMUCIL [Concomitant]
     Active Substance: ACETYLCYSTEINE
     Dosage: 1 DF (600 MG), 1X/DAY, BY JEJUNAL TUBE
  10. FLAGYL [Concomitant]
     Active Substance: METRONIDAZOLE\METRONIDAZOLE HYDROCHLORIDE
     Indication: KLEBSIELLA INFECTION
     Dosage: 1500 MG EVERY 24 HOURS, INJECTABLE SOLUTION
     Route: 042
     Dates: start: 20200529, end: 20200715
  11. PARACETAMOL [Concomitant]
     Active Substance: ACETAMINOPHEN
     Dosage: 500 MG, EVERY 6 HOURS,  (BY JEJUNAL TUBE)
  12. ASPEGIC [ACETYLSALICYLIC ACID] [Concomitant]
     Active Substance: ASPIRIN
     Dosage: 1 DF (100 MG), 1X/DAY
  13. DIFLUCAN [Concomitant]
     Active Substance: FLUCONAZOLE
     Indication: SUPERINFECTION
  14. CEFTAZIDIME [CEFTAZIDIME PENTAHYDRATE] [Concomitant]
     Indication: LUNG DISORDER
     Dosage: 2 G, EVERY 12 HOURS (INTAVENOUS INFUSION)
     Route: 042
     Dates: start: 20200710, end: 20200718
  15. AMIODARONE [AMIODARONE HYDROCHLORIDE] [Concomitant]
     Active Substance: AMIODARONE HYDROCHLORIDE
     Indication: ATRIAL FIBRILLATION
     Dosage: 300 MG, BY IV PUMP BEFOREHAND IN TABLETS OF 200 MG
     Route: 041

REACTIONS (6)
  - Skin haemorrhage [Recovered/Resolved]
  - Coagulopathy [Recovered/Resolved]
  - Off label use [Unknown]
  - Thrombocytopenia [Recovered/Resolved]
  - Skin wound [Recovered/Resolved]
  - Product use in unapproved indication [Unknown]

NARRATIVE: CASE EVENT DATE: 20200702
